FAERS Safety Report 26153033 (Version 1)
Quarter: 2025Q4

REPORT INFORMATION
  Report Type: Spontaneous
  Country: US (occurrence: US)
  Receive Date: 20251214
  Receipt Date: 20251214
  Transmission Date: 20260117
  Serious: No
  Sender: MILLICENT HOLDINGS
  Company Number: US-Millicent Holdings Ltd.-MILL20250368

PATIENT
  Sex: Female

DRUGS (6)
  1. INTRAROSA [Suspect]
     Active Substance: PRASTERONE
     Indication: Vulvovaginal pain
     Dosage: THREE TIMES A WEEK
     Route: 067
     Dates: start: 2024, end: 2024
  2. INTRAROSA [Suspect]
     Active Substance: PRASTERONE
     Dosage: PRESCRIBED EVERY NIGHT BUT USED IT EVERY OTHER NIGHT
     Route: 067
     Dates: start: 202509, end: 202511
  3. INTRAROSA [Suspect]
     Active Substance: PRASTERONE
     Dosage: THREE TIMES A WEEK
     Route: 067
     Dates: start: 2023
  4. INTRAROSA [Suspect]
     Active Substance: PRASTERONE
     Dosage: TWO TIMES A WEEK
     Route: 067
     Dates: start: 202511, end: 2025
  5. BONAFIDE [Concomitant]
     Indication: Product used for unknown indication
     Dosage: UNKNOWN, ON THE NIGHTS SHE DIDN^T USE INTRAROSA
     Route: 065
  6. vaginal topical cream [Concomitant]
     Indication: Product used for unknown indication
     Dosage: UNKNOWN
     Route: 061

REACTIONS (3)
  - Bacterial vaginosis [Unknown]
  - Off label use [Unknown]
  - Inappropriate schedule of product administration [Unknown]

NARRATIVE: CASE EVENT DATE: 20250901
